FAERS Safety Report 9015752 (Version 1)
Quarter: 2013Q1

REPORT INFORMATION
  Report Type: Spontaneous
  Country: GB (occurrence: None)
  Receive Date: 20130102
  Receipt Date: 20130102
  Transmission Date: 20140127
  Serious: Yes (Other)
  Sender: FDA-Public Use
  Company Number: TPA2012A11230

PATIENT
  Age: 78 Year
  Sex: Female

DRUGS (13)
  1. ADENURIC (FEBUXOSTAT) [Suspect]
     Indication: GOUT
     Route: 048
     Dates: start: 20121106
  2. ATORVASTATIN (ATORVASTATIN) [Concomitant]
  3. BISOPROLOL (BISOPROLOL) [Concomitant]
  4. CARMELLOSE SODIUM (CARMELLOSE SODIUM) [Concomitant]
  5. CLOPIDOGREL (CLOPIDOGREL) [Concomitant]
  6. CO-DYDRAMOL (PARACETAMOL, DIHYDROCODEINE BITARTRATE) [Concomitant]
  7. DORZOLAMIDE HYDROCHLORIDE (DORZOLAMIDE HYDROCHLORIDE) [Concomitant]
  8. EPADERN (PETROLATUM, PARAFFIN, LIQUID, EMULSIFYING WAX) [Concomitant]
  9. ETORICOXIB (ETORICOXIB) [Concomitant]
  10. IRBESARTAN (IRBESARTAN) [Concomitant]
  11. ISOSORBIDE MONONITRATE (ISOSORBIDE MONONITRATE) [Concomitant]
  12. NITRAZEPAM (NITRAZEPAM) [Concomitant]
  13. OMEPRAZOLE (OMEPRAZOLE) [Concomitant]

REACTIONS (1)
  - Confusional state [None]
